FAERS Safety Report 4972105-8 (Version None)
Quarter: 2006Q2

REPORT INFORMATION
  Report Type: 
  Country: None (occurrence: None)
  Receive Date: 20060412
  Receipt Date: 20060412
  Transmission Date: 20061013
  Serious: Yes (Death, Hospitalization, Disabling)
  Sender: FDA-Public Use
  Company Number: None

PATIENT
  Age: 58 Year
  Sex: Male
  Weight: 86.2 kg

DRUGS (4)
  1. VIREAD [Suspect]
     Indication: HIV INFECTION
     Dosage: 300 MG DAILY PO
     Route: 048
     Dates: start: 20040201, end: 20060228
  2. EPIVIR [Concomitant]
  3. REYATAZ [Concomitant]
  4. NORVIR [Concomitant]

REACTIONS (7)
  - ACIDOSIS [None]
  - ASTHENIA [None]
  - DECREASED APPETITE [None]
  - FALL [None]
  - HAEMODIALYSIS [None]
  - PROTEINURIA [None]
  - RENAL FAILURE ACUTE [None]
